FAERS Safety Report 17650465 (Version 1)
Quarter: 2020Q2

REPORT INFORMATION
  Report Type: Spontaneous
  Country: US (occurrence: US)
  Receive Date: 20200409
  Receipt Date: 20200409
  Transmission Date: 20200713
  Serious: No
  Sender: FDA-Public Use
  Company Number: None

PATIENT
  Age: 53 Year
  Sex: Female
  Weight: 47.25 kg

DRUGS (12)
  1. MOMETASONE [Concomitant]
     Active Substance: MOMETASONE
  2. ALLEGRA-D [Concomitant]
     Active Substance: FEXOFENADINE\PSEUDOEPHEDRINE
  3. FLONASE [Concomitant]
     Active Substance: FLUTICASONE PROPIONATE
  4. RESTASIS [Concomitant]
     Active Substance: CYCLOSPORINE
  5. NITROFURANTOIN. [Concomitant]
     Active Substance: NITROFURANTOIN
  6. ALEVE [Concomitant]
     Active Substance: NAPROXEN SODIUM
  7. ELETRIPTAN. [Concomitant]
     Active Substance: ELETRIPTAN
  8. VALERIAN [Concomitant]
     Active Substance: VALERIAN
  9. GABAPENTIN 100 MG [Suspect]
     Active Substance: GABAPENTIN
     Indication: SLEEP DISORDER
     Route: 048
     Dates: end: 20200405
  10. MIRENA [Concomitant]
     Active Substance: LEVONORGESTREL
  11. SERTRALINE [Concomitant]
     Active Substance: SERTRALINE HYDROCHLORIDE
  12. IBUPROFEN. [Concomitant]
     Active Substance: IBUPROFEN

REACTIONS (7)
  - Migraine [None]
  - Insomnia [None]
  - Malaise [None]
  - Therapy interrupted [None]
  - Memory impairment [None]
  - Fatigue [None]
  - Hyperhidrosis [None]

NARRATIVE: CASE EVENT DATE: 20200407
